FAERS Safety Report 6271281-7 (Version None)
Quarter: 2009Q3

REPORT INFORMATION
  Report Type: 
  Country: None (occurrence: None)
  Receive Date: 20090716
  Receipt Date: 20090716
  Transmission Date: 20100115
  Serious: No
  Sender: FDA-Public Use
  Company Number: None

PATIENT
  Sex: Female
  Weight: 73.4827 kg

DRUGS (3)
  1. LEVAQUIN [Suspect]
     Indication: PNEUMONIA BACTERIAL
     Dosage: 750 MG 1 PER DAY
     Dates: start: 20090607
  2. LEVAQUIN [Suspect]
     Indication: PNEUMONIA BACTERIAL
     Dosage: 750 MG 1 PER DAY
     Dates: start: 20090608
  3. LEVAQUIN [Suspect]
     Indication: PNEUMONIA BACTERIAL
     Dosage: 750 MG 1 PER DAY
     Dates: start: 20090609

REACTIONS (6)
  - ARTHRALGIA [None]
  - HEADACHE [None]
  - JOINT SWELLING [None]
  - MUSCULOSKELETAL PAIN [None]
  - NECK PAIN [None]
  - TENDONITIS [None]
